FAERS Safety Report 20685149 (Version 4)
Quarter: 2022Q2

REPORT INFORMATION
  Report Type: Spontaneous
  Country: JP (occurrence: JP)
  Receive Date: 20220407
  Receipt Date: 20220601
  Transmission Date: 20220721
  Serious: Yes (Hospitalization, Other)
  Sender: FDA-Public Use
  Company Number: JP-AMGEN-JPNSL2022058720

PATIENT
  Sex: Female
  Weight: 37 kg

DRUGS (2)
  1. LUMAKRAS [Suspect]
     Active Substance: SOTORASIB
     Indication: Lung neoplasm malignant
     Dosage: 960 MILLIGRAM, QD
     Route: 048
     Dates: start: 20220309, end: 20220323
  2. LUMAKRAS [Suspect]
     Active Substance: SOTORASIB
     Dosage: 480 MILLIGRAM, QD
     Route: 048
     Dates: start: 202205

REACTIONS (1)
  - Hepatic function abnormal [Recovered/Resolved]

NARRATIVE: CASE EVENT DATE: 20220324
